FAERS Safety Report 12114759 (Version 1)
Quarter: 2016Q1

REPORT INFORMATION
  Report Type: Spontaneous
  Country: IT (occurrence: IT)
  Receive Date: 20160225
  Receipt Date: 20160225
  Transmission Date: 20160526
  Serious: Yes (Death)
  Sender: FDA-Public Use
  Company Number: IT-WATSON-2016-03034

PATIENT
  Sex: Male

DRUGS (1)
  1. KETOROLAC [Suspect]
     Active Substance: KETOROLAC\KETOROLAC TROMETHAMINE
     Indication: POSTOPERATIVE ANALGESIA
     Dosage: 15 MG, PRN
     Route: 042
     Dates: start: 20160128, end: 20160128

REACTIONS (1)
  - Cardio-respiratory arrest [Fatal]
